FAERS Safety Report 23033630 (Version 1)
Quarter: 2023Q4

REPORT INFORMATION
  Report Type: Spontaneous
  Country: CA (occurrence: None)
  Receive Date: 20231004
  Receipt Date: 20231004
  Transmission Date: 20240110
  Serious: Yes (Other)
  Sender: FDA-Public Use
  Company Number: None

PATIENT
  Age: 28 Year
  Sex: Male
  Weight: 66 kg

DRUGS (1)
  1. MINOXIDIL EXTRA STRENGTH FOR MEN [Suspect]
     Active Substance: MINOXIDIL
     Indication: Alopecia
     Dates: start: 20230929, end: 20231001

REACTIONS (5)
  - Libido decreased [None]
  - Erectile dysfunction [None]
  - Penile size reduced [None]
  - Headache [None]
  - Palpitations [None]

NARRATIVE: CASE EVENT DATE: 20231001
